FAERS Safety Report 10268176 (Version 2)
Quarter: 2014Q3

REPORT INFORMATION
  Report Type: Spontaneous
  Country: FR (occurrence: FR)
  Receive Date: 20140630
  Receipt Date: 20140815
  Transmission Date: 20150326
  Serious: Yes (Hospitalization)
  Sender: FDA-Public Use
  Company Number: FR-PFIZER INC-2014173955

PATIENT
  Age: 87 Year
  Sex: Female

DRUGS (10)
  1. RISPERDAL [Suspect]
     Active Substance: RISPERIDONE
     Dosage: 0.5 MG, 2X/DAY (ONE TABLET IN THE MORNING AND ONE IN THE EVENING)
     Route: 048
     Dates: end: 20140515
  2. PREVISCAN [Concomitant]
     Active Substance: FLUINDIONE
     Dosage: UNK
  3. ATARAX [Suspect]
     Active Substance: HYDROXYZINE\HYDROXYZINE HYDROCHLORIDE
     Dosage: 25 MG, 1X/DAY (ONE TABLET IN THE EVENING)
     Route: 048
     Dates: end: 20140514
  4. FLECAINE LP [Suspect]
     Active Substance: FLECAINIDE
     Indication: EXTRASYSTOLES
     Dosage: 150 MG, 1X/DAY
     Route: 048
  5. ARIMIDEX [Concomitant]
     Active Substance: ANASTROZOLE
     Dosage: UNK
  6. RISPERDAL [Suspect]
     Active Substance: RISPERIDONE
     Dosage: 0.25 MG, 1X/DAY (HALF THE INITIAL DOSE)
     Route: 048
     Dates: start: 20140516
  7. FORLAX [Concomitant]
     Active Substance: POLYETHYLENE GLYCOL 4000
     Dosage: UNK
  8. EFFEXOR LP [Suspect]
     Active Substance: VENLAFAXINE HYDROCHLORIDE
     Dosage: 75 MG, 1X/DAY
     Route: 048
     Dates: end: 20140514
  9. EFFEXOR LP [Suspect]
     Active Substance: VENLAFAXINE HYDROCHLORIDE
     Dosage: 37.5 MG, ALTERNATE DAY
     Route: 048
     Dates: start: 20140515
  10. TARDYFERON [Concomitant]
     Active Substance: FERROUS SULFATE\FOLIC ACID
     Dosage: UNK

REACTIONS (3)
  - Tremor [Recovered/Resolved]
  - Myoclonus [Recovered/Resolved]
  - Parkinsonism [Recovered/Resolved]

NARRATIVE: CASE EVENT DATE: 20140512
